FAERS Safety Report 6557936-5 (Version None)
Quarter: 2010Q1

REPORT INFORMATION
  Report Type: 
  Country: None (occurrence: None)
  Receive Date: 20100127
  Receipt Date: 20100127
  Transmission Date: 20100710
  Serious: Yes (Hospitalization)
  Sender: FDA-Public Use
  Company Number: None

PATIENT
  Age: 70 Year
  Sex: Female
  Weight: 64.8 kg

DRUGS (4)
  1. SAHA (VORINOSTAT) [Suspect]
     Indication: LUNG NEOPLASM MALIGNANT
     Dosage: 400MG D 1-14 PO
     Route: 048
     Dates: start: 20100118
  2. BORTEZOMIB [Suspect]
     Indication: LUNG NEOPLASM MALIGNANT
     Dosage: 2.2 MG D 1, 4, 8, 11 IV
     Route: 042
     Dates: start: 20100118
  3. BORTEZOMIB [Suspect]
     Indication: LUNG NEOPLASM MALIGNANT
     Dosage: 2.2 MG D 1, 4, 8, 11 IV
     Route: 042
     Dates: start: 20100121
  4. BORTEZOMIB [Suspect]
     Indication: LUNG NEOPLASM MALIGNANT
     Dosage: 2.2 MG D 1, 4, 8, 11 IV
     Route: 042
     Dates: start: 20100125

REACTIONS (3)
  - PNEUMONIA [None]
  - SEPSIS [None]
  - TACHYCARDIA [None]
